FAERS Safety Report 6611998-5 (Version None)
Quarter: 2010Q1

REPORT INFORMATION
  Report Type: 
  Country: None (occurrence: None)
  Receive Date: 20100303
  Receipt Date: 20100118
  Transmission Date: 20100710
  Serious: Yes (Death)
  Sender: FDA-Public Use
  Company Number: GXKR2010DK01015

PATIENT
  Sex: Male

DRUGS (2)
  1. HJERDYL (NGX) [Suspect]
     Indication: THROMBOSIS PROPHYLAXIS
     Dosage: 75 MG, QD
     Route: 048
  2. MAREVAN ^NYCOMED^ [Interacting]
     Indication: ATRIAL FIBRILLATION
     Dosage: 2.5 MG, FOLLOWING SCHEMA
     Route: 048

REACTIONS (2)
  - CEREBRAL HAEMORRHAGE [None]
  - DRUG INTERACTION [None]
